FAERS Safety Report 11693362 (Version 1)
Quarter: 2015Q4

REPORT INFORMATION
  Report Type: Report from Study
  Country: JP (occurrence: JP)
  Receive Date: 20151103
  Receipt Date: 20151103
  Transmission Date: 20160304
  Serious: Yes (Hospitalization)
  Sender: FDA-Public Use
  Company Number: JP-ELI_LILLY_AND_COMPANY-JP201509007568

PATIENT
  Sex: Female

DRUGS (1)
  1. FORTEO [Suspect]
     Active Substance: TERIPARATIDE
     Indication: PRODUCT USED FOR UNKNOWN INDICATION
     Dosage: UNK
     Route: 058
     Dates: end: 201509

REACTIONS (5)
  - Off label use [Unknown]
  - Renal impairment [Unknown]
  - Blood potassium increased [Recovering/Resolving]
  - Cardiac failure [Unknown]
  - Tooth fracture [Unknown]

NARRATIVE: CASE EVENT DATE: 201509
